FAERS Safety Report 7034008-7 (Version None)
Quarter: 2010Q4

REPORT INFORMATION
  Report Type: 
  Country: None (occurrence: None)
  Receive Date: 20101007
  Receipt Date: 20100930
  Transmission Date: 20110411
  Serious: Yes (Death)
  Sender: FDA-Public Use
  Company Number: PHHY2010LB65575

PATIENT
  Age: 76 Year
  Sex: Female

DRUGS (6)
  1. RASILEZ [Suspect]
     Indication: HYPERTENSION
     Dosage: 300 MG, UNK
     Route: 048
     Dates: start: 20100815
  2. JANUMET [Concomitant]
  3. PROTELUS [Concomitant]
  4. AMLODIPINE [Concomitant]
  5. BIPRETERAX [Concomitant]
  6. DIURETICS [Concomitant]

REACTIONS (2)
  - BLOOD PRESSURE SYSTOLIC INCREASED [None]
  - SUDDEN DEATH [None]
